FAERS Safety Report 10086394 (Version 3)
Quarter: 2014Q3

REPORT INFORMATION
  Report Type: Spontaneous
  Country: US (occurrence: None)
  Receive Date: 20140409
  Receipt Date: 20140711
  Transmission Date: 20150326
  Serious: Yes (Death)
  Sender: FDA-Public Use
  Company Number: 003-169

PATIENT
  Age: 26 Year
  Sex: Male

DRUGS (1)
  1. CROFAB [Suspect]
     Active Substance: CROTALIDAE POLYVALENT IMMUNE FAB (OVINE)
     Indication: SNAKE BITE
     Dosage: 6 VIALS TOTAL

REACTIONS (7)
  - Pulmonary congestion [None]
  - Muscle haemorrhage [None]
  - Asphyxia [None]
  - Completed suicide [None]
  - Pruritus [None]
  - Pain [None]
  - Skin abrasion [None]

NARRATIVE: CASE EVENT DATE: 20130804
